FAERS Safety Report 20191419 (Version 3)
Quarter: 2022Q1

REPORT INFORMATION
  Report Type: Report from Study
  Country: US (occurrence: US)
  Receive Date: 20211216
  Receipt Date: 20220310
  Transmission Date: 20220423
  Serious: No
  Sender: FDA-Public Use
  Company Number: US-NOVARTISTESTPH-NVSC2021US287960

PATIENT
  Sex: Female

DRUGS (1)
  1. COSENTYX [Suspect]
     Active Substance: SECUKINUMAB
     Indication: Psoriatic arthropathy
     Dosage: UNK
     Route: 065

REACTIONS (8)
  - Rash [Unknown]
  - Muscle spasms [Unknown]
  - Headache [Unknown]
  - Pruritus [Unknown]
  - Sinus disorder [Unknown]
  - Anxiety [Unknown]
  - Urticaria [Unknown]
  - Inappropriate schedule of product administration [Unknown]
